FAERS Safety Report 14013805 (Version 2)
Quarter: 2017Q4

REPORT INFORMATION
  Report Type: Report from Study
  Country: US (occurrence: US)
  Receive Date: 20170926
  Receipt Date: 20171011
  Transmission Date: 20180321
  Serious: Yes (Other)
  Sender: FDA-Public Use
  Company Number: US-JAZZ-2017-US-012396

PATIENT
  Age: 23 Year
  Sex: Female

DRUGS (1)
  1. XYREM [Suspect]
     Active Substance: SODIUM OXYBATE
     Indication: NARCOLEPSY
     Dosage: 3 G, BID
     Route: 048
     Dates: start: 201709

REACTIONS (7)
  - Pollakiuria [Not Recovered/Not Resolved]
  - Vomiting [Unknown]
  - Wrong technique in product usage process [Unknown]
  - Consciousness fluctuating [Unknown]
  - Dizziness [Unknown]
  - Abnormal dreams [Not Recovered/Not Resolved]
  - Food craving [Unknown]

NARRATIVE: CASE EVENT DATE: 201709
